FAERS Safety Report 11221806 (Version 1)
Quarter: 2015Q2

REPORT INFORMATION
  Report Type: Spontaneous
  Country: FR (occurrence: FR)
  Receive Date: 20150626
  Receipt Date: 20150626
  Transmission Date: 20150821
  Serious: Yes (Hospitalization)
  Sender: FDA-Public Use
  Company Number: FR-BEH-2015051939

PATIENT
  Sex: Female

DRUGS (1)
  1. RHOPHYLAC [Suspect]
     Active Substance: HUMAN RHO(D) IMMUNE GLOBULIN
     Indication: RHESUS INCOMPATIBILITY
     Dosage: FIRST DOSE OF RHOPHYLAC ON 16-OCT-2014, 300 MICROGRAM/2ML
     Dates: start: 20141016

REACTIONS (4)
  - Cardiac disorder [Unknown]
  - Respiratory distress [Unknown]
  - Infection [Unknown]
  - Forceps delivery [Unknown]

NARRATIVE: CASE EVENT DATE: 20150111
